FAERS Safety Report 4704399-8 (Version None)
Quarter: 2005Q2

REPORT INFORMATION
  Report Type: 
  Country: None (occurrence: None)
  Receive Date: 20050630
  Receipt Date: 20050525
  Transmission Date: 20051028
  Serious: Yes (Other)
  Sender: FDA-Public Use
  Company Number: GB-GLAXOSMITHKLINE-B0382312A

PATIENT
  Age: 45 Year
  Sex: Female
  Weight: 74 kg

DRUGS (4)
  1. GW679769 [Suspect]
     Dosage: 150MG PER DAY
     Route: 048
     Dates: start: 20050524, end: 20050525
  2. ONDANSETRON [Suspect]
     Dosage: 16MG PER DAY
     Route: 048
     Dates: start: 20050524, end: 20050525
  3. DEXAMETHASONE [Suspect]
     Dosage: 8MG SINGLE DOSE
     Route: 042
     Dates: start: 20050524, end: 20050524
  4. EPIRUBICIN [Concomitant]
     Indication: CHEMOTHERAPY

REACTIONS (4)
  - HOT FLUSH [None]
  - HYPERSENSITIVITY [None]
  - RESPIRATORY TRACT CONGESTION [None]
  - WHEEZING [None]
